FAERS Safety Report 10187427 (Version 7)
Quarter: 2014Q3

REPORT INFORMATION
  Report Type: Report from Study
  Country: FR (occurrence: FR)
  Receive Date: 20140522
  Receipt Date: 20140813
  Transmission Date: 20150326
  Serious: Yes (Death, Life-Threatening, Hospitalization)
  Sender: FDA-Public Use
  Company Number: FR-ROCHE-1395207

PATIENT
  Age: 73 Year
  Sex: Male
  Weight: 55 kg

DRUGS (20)
  1. KARDEGIC [Concomitant]
     Active Substance: ASPIRIN LYSINE
     Route: 065
     Dates: start: 20130427
  2. IMODIUM [Concomitant]
     Active Substance: LOPERAMIDE HYDROCHLORIDE
     Route: 048
     Dates: start: 20140107, end: 20140108
  3. DEXAMETHASONE. [Concomitant]
     Active Substance: DEXAMETHASONE
     Route: 065
     Dates: start: 20131126, end: 20131126
  4. IMODIUM [Concomitant]
     Active Substance: LOPERAMIDE HYDROCHLORIDE
     Indication: DIARRHOEA
     Route: 065
     Dates: start: 20130221, end: 20130221
  5. IMODIUM [Concomitant]
     Active Substance: LOPERAMIDE HYDROCHLORIDE
     Route: 065
     Dates: start: 20130401, end: 20130402
  6. LAMICTAL [Concomitant]
     Active Substance: LAMOTRIGINE
     Indication: PARAESTHESIA
     Route: 065
     Dates: start: 20130521
  7. LEXOMIL [Concomitant]
     Active Substance: BROMAZEPAM
     Dosage: DOSE: 1/2 TABLET
     Route: 048
     Dates: start: 20140313, end: 20140325
  8. VISMODEGIB [Suspect]
     Active Substance: VISMODEGIB
     Indication: BASAL CELL CARCINOMA
     Dosage: LAST DOSE PRIOR TO ACUTE ABDOMINAL HEMORRHAGE, DUODENAL ULCER: 29/MAR/2014.
     Route: 048
     Dates: start: 20121109
  9. LEXOMIL [Concomitant]
     Active Substance: BROMAZEPAM
     Dosage: DOSE: 1/4 TABLET
     Route: 048
     Dates: start: 20131106, end: 20131107
  10. AUGMENTIN [Concomitant]
     Active Substance: AMOXICILLIN\CLAVULANATE POTASSIUM
     Indication: PNEUMONIA BACTERIAL
     Route: 065
     Dates: start: 20130427, end: 20130508
  11. TAVANIC [Concomitant]
     Active Substance: LEVOFLOXACIN
     Indication: PNEUMONIA BACTERIAL
     Route: 065
     Dates: start: 20130508, end: 20130521
  12. LAMICTAL [Concomitant]
     Active Substance: LAMOTRIGINE
     Indication: EPILEPSY
     Route: 065
     Dates: start: 20130517, end: 20130520
  13. LEXOMIL [Concomitant]
     Active Substance: BROMAZEPAM
     Indication: ANXIETY
     Dosage: DOSE: 1/4 TABLET
     Route: 048
     Dates: start: 20140326
  14. TIORFAN [Concomitant]
     Active Substance: RACECADOTRIL
     Dosage: 3TABLETS/DAY
     Route: 065
     Dates: start: 20140329, end: 20140410
  15. SMECTA [Concomitant]
     Active Substance: MONTMORILLONITE
     Indication: DIARRHOEA
     Route: 065
     Dates: start: 20130221, end: 20130221
  16. IMODIUM [Concomitant]
     Active Substance: LOPERAMIDE HYDROCHLORIDE
     Route: 065
     Dates: start: 20130524, end: 20130528
  17. PLAVIX [Concomitant]
     Active Substance: CLOPIDOGREL BISULFATE
     Route: 065
     Dates: start: 20110401
  18. ROCEPHINE [Concomitant]
     Active Substance: CEFTRIAXONE SODIUM
     Indication: PNEUMONIA BACTERIAL
     Route: 065
     Dates: start: 20130508, end: 20130521
  19. CLOPIDOGREL [Suspect]
     Active Substance: CLOPIDOGREL BISULFATE
     Indication: ARTERIAL DISORDER
     Route: 065
     Dates: start: 20110401
  20. PARACETAMOL [Concomitant]
     Active Substance: ACETAMINOPHEN
     Indication: PAIN PROPHYLAXIS
     Route: 065
     Dates: start: 20121109

REACTIONS (3)
  - Small intestinal haemorrhage [Fatal]
  - Anaemia [Recovered/Resolved with Sequelae]
  - Duodenal ulcer [Not Recovered/Not Resolved]

NARRATIVE: CASE EVENT DATE: 20140428
